FAERS Safety Report 19332284 (Version 4)
Quarter: 2022Q1

REPORT INFORMATION
  Report Type: Report from Study
  Country: MX (occurrence: MX)
  Receive Date: 20210529
  Receipt Date: 20220307
  Transmission Date: 20220423
  Serious: Yes (Hospitalization, Other)
  Sender: FDA-Public Use
  Company Number: MX-JNJFOC-20210421799

PATIENT
  Age: 7 Decade
  Sex: Female
  Weight: 58 kg

DRUGS (3)
  1. REMICADE [Suspect]
     Active Substance: INFLIXIMAB
     Indication: Colitis ulcerative
     Route: 042
     Dates: start: 20100129
  2. REMICADE [Suspect]
     Active Substance: INFLIXIMAB
     Route: 042
     Dates: start: 20220205
  3. IMATINIB [Concomitant]
     Active Substance: IMATINIB

REACTIONS (4)
  - Liver abscess [Unknown]
  - Anaemia [Recovered/Resolved]
  - Gastric cancer [Unknown]
  - Joint dislocation [Unknown]

NARRATIVE: CASE EVENT DATE: 20210322
